FAERS Safety Report 7743785-9 (Version None)
Quarter: 2011Q3

REPORT INFORMATION
  Report Type: 
  Country: None (occurrence: None)
  Receive Date: 20110912
  Receipt Date: 20110902
  Transmission Date: 20111222
  Serious: Yes (Hospitalization)
  Sender: FDA-Public Use
  Company Number: US-GLAXOSMITHKLINE-A0814110A

PATIENT
  Age: 53 Year
  Sex: Male
  Weight: 143.2 kg

DRUGS (8)
  1. LIPITOR [Concomitant]
  2. AVANDIA [Suspect]
     Indication: TYPE 2 DIABETES MELLITUS
     Dosage: 8MG PER DAY
     Route: 048
     Dates: start: 19991217, end: 20070201
  3. INSULIN [Concomitant]
  4. LISINOPRIL [Concomitant]
  5. AMARYL [Concomitant]
  6. CIALIS [Concomitant]
  7. METFORMIN HCL [Concomitant]
  8. AVANDAMET [Suspect]
     Indication: TYPE 2 DIABETES MELLITUS
     Route: 048
     Dates: start: 20040824, end: 20060301

REACTIONS (4)
  - CORONARY ARTERY DISEASE [None]
  - WEIGHT DECREASED [None]
  - ARTERIOSCLEROSIS [None]
  - MYOCARDIAL INFARCTION [None]
